FAERS Safety Report 10812420 (Version 1)
Quarter: 2015Q1

REPORT INFORMATION
  Report Type: Spontaneous
  Country: US (occurrence: None)
  Receive Date: 20150213
  Receipt Date: 20150213
  Transmission Date: 20150721
  Serious: Yes (Hospitalization)
  Sender: FDA-Public Use
  Company Number: None

PATIENT
  Age: 50 Year
  Sex: Female
  Weight: 41.9 kg

DRUGS (2)
  1. EVEROLIMUS [Suspect]
     Active Substance: EVEROLIMUS
     Indication: THYROID CANCER
     Dates: end: 20150206
  2. PASIREOTIDE [Suspect]
     Active Substance: PASIREOTIDE
     Indication: THYROID CANCER
     Dates: end: 20150128

REACTIONS (1)
  - Haemoptysis [None]

NARRATIVE: CASE EVENT DATE: 20150210
